FAERS Safety Report 4833779-5 (Version None)
Quarter: 2005Q4

REPORT INFORMATION
  Report Type: 
  Country: None (occurrence: None)
  Receive Date: 20051118
  Receipt Date: 20051107
  Transmission Date: 20060501
  Serious: Yes (Death)
  Sender: FDA-Public Use
  Company Number: 2005-BP-19449RO

PATIENT
  Age: 40 Year

DRUGS (3)
  1. METHADONE (METHADONE) [Suspect]
  2. DIAZEPAM [Suspect]
  3. BACLOFEN [Suspect]

REACTIONS (3)
  - CARDIAC ARREST [None]
  - COMPLETED SUICIDE [None]
  - RESPIRATORY ARREST [None]
